FAERS Safety Report 25007521 (Version 1)
Quarter: 2025Q1

REPORT INFORMATION
  Report Type: Report from Study
  Country: US (occurrence: US)
  Receive Date: 20250225
  Receipt Date: 20250225
  Transmission Date: 20250409
  Serious: Yes (Other)
  Sender: SUNOVION
  Company Number: US-SUMITOMO PHARMA SWITZERLAND GMBH-2024SPA000883

PATIENT

DRUGS (6)
  1. ORGOVYX [Suspect]
     Active Substance: RELUGOLIX
     Indication: Prostate cancer
     Route: 048
  2. ORGOVYX [Suspect]
     Active Substance: RELUGOLIX
     Dosage: 120 MG, QD
     Route: 048
     Dates: start: 20240522
  3. TRULICITY [Suspect]
     Active Substance: DULAGLUTIDE
     Route: 065
  4. WEGOVY [Suspect]
     Active Substance: SEMAGLUTIDE
     Route: 065
  5. ABIRATERONE [Concomitant]
     Active Substance: ABIRATERONE
     Indication: Prostate cancer
     Dosage: 1000 MG, QD
     Route: 065
     Dates: start: 20240522
  6. PREDNISONE [Concomitant]
     Active Substance: PREDNISONE
     Indication: Prostate cancer
     Dosage: 5 MG, QD
     Route: 065
     Dates: start: 20240522

REACTIONS (14)
  - Wrist surgery [Unknown]
  - Rib fracture [Unknown]
  - Road traffic accident [Unknown]
  - Weight decreased [Unknown]
  - Blood testosterone decreased [Unknown]
  - Andropause [Not Recovered/Not Resolved]
  - Sacral pain [Unknown]
  - Pain [Unknown]
  - Gait disturbance [Unknown]
  - Mood swings [Unknown]
  - Depressed mood [Unknown]
  - Arthralgia [Unknown]
  - Insomnia [Unknown]
  - Hot flush [Recovering/Resolving]
